FAERS Safety Report 5107033-0 (Version None)
Quarter: 2006Q3

REPORT INFORMATION
  Report Type: 
  Country: None (occurrence: None)
  Receive Date: 20060913
  Receipt Date: 20060901
  Transmission Date: 20061208
  Serious: Yes (Other)
  Sender: FDA-Public Use
  Company Number: 2006-04820

PATIENT
  Age: 53 Year
  Sex: Male
  Weight: 49.9 kg

DRUGS (3)
  1. LIDOCAINE HYDROCHLORIDE [Suspect]
     Indication: NERVE BLOCK
     Dosage: 10 ML, SINGLE
  2. BUPIVACAINE [Suspect]
     Indication: NERVE BLOCK
     Dosage: 40 ML SINGLE, (0.5%)
  3. MIDAZOLAM HCL [Concomitant]

REACTIONS (1)
  - DIAPHRAGMATIC PARALYSIS [None]
